FAERS Safety Report 6908170-8 (Version None)
Quarter: 2010Q3

REPORT INFORMATION
  Report Type: 
  Country: None (occurrence: None)
  Receive Date: 20100805
  Receipt Date: 20100729
  Transmission Date: 20110219
  Serious: Yes (Hospitalization)
  Sender: FDA-Public Use
  Company Number: GB-ALLERGAN-1009849US

PATIENT
  Age: 20 Year
  Sex: Female
  Weight: 47.6 kg

DRUGS (3)
  1. BOTULINUM TOXIN TYPE A [Suspect]
     Indication: URINARY RETENTION
     Dosage: 100 UNITS, SINGLE
     Dates: start: 20100625, end: 20100625
  2. BOTULINUM TOXIN TYPE A [Suspect]
     Indication: DYSURIA
  3. OXAZEPAM [Concomitant]

REACTIONS (1)
  - MUSCLE TWITCHING [None]
